FAERS Safety Report 4445006-1 (Version None)
Quarter: 2004Q3

REPORT INFORMATION
  Report Type: 
  Country: None (occurrence: None)
  Receive Date: 20040908
  Receipt Date: 20040908
  Transmission Date: 20050211
  Serious: Yes (Other)
  Sender: FDA-Public Use
  Company Number: None

PATIENT
  Age: 14 Year
  Sex: Male
  Weight: 49.8957 kg

DRUGS (1)
  1. CORICIDIN [Suspect]
     Dosage: 16 TABLETS ORAL  1 DOSE
     Route: 048

REACTIONS (3)
  - DRUG ABUSER [None]
  - FEELING ABNORMAL [None]
  - OVERDOSE [None]
